FAERS Safety Report 16179280 (Version 3)
Quarter: 2023Q1

REPORT INFORMATION
  Report Type: Report from Study
  Country: US (occurrence: US)
  Receive Date: 20190410
  Receipt Date: 20230306
  Transmission Date: 20230418
  Serious: Yes (Hospitalization, Other)
  Sender: FDA-Public Use
  Company Number: US-GW PHARMA-201904USGW0937

PATIENT

DRUGS (12)
  1. EPIDIOLEX [Suspect]
     Active Substance: CANNABIDIOL
     Indication: Seizure
     Dosage: 12.5 MG/KG, 200 MILLIGRAM, BID (WEEK 4)
     Route: 048
     Dates: start: 20190429
  2. EPIDIOLEX [Suspect]
     Active Substance: CANNABIDIOL
     Dosage: 9.37 MG/KG, 150 MILLIGRAM,BID (WEEK 3)
     Route: 048
     Dates: start: 20190421, end: 20190428
  3. EPIDIOLEX [Suspect]
     Active Substance: CANNABIDIOL
     Dosage: 6.25 MG/KG, 100 MILLIGRAM,BID (WEEK 2)
     Route: 048
     Dates: start: 20190413, end: 20190420
  4. EPIDIOLEX [Suspect]
     Active Substance: CANNABIDIOL
     Dosage: 3.12 MG/KG 50 MILLIGRAM,BID (WEEK 1)
     Route: 048
     Dates: start: 20190405, end: 20190412
  5. EPIDIOLEX [Suspect]
     Active Substance: CANNABIDIOL
     Dosage: 5.5 MILLILITER, BID
  6. KEPPRA [Concomitant]
     Active Substance: LEVETIRACETAM
     Indication: Product used for unknown indication
     Dosage: UNK
     Route: 065
  7. DEPAKOTE [Concomitant]
     Active Substance: DIVALPROEX SODIUM
     Indication: Product used for unknown indication
     Dosage: UNK
     Route: 065
  8. BANZEL [Concomitant]
     Active Substance: RUFINAMIDE
     Indication: Product used for unknown indication
     Dosage: UNK
     Route: 065
  9. BRIVIACT [Concomitant]
     Active Substance: BRIVARACETAM
     Indication: Product used for unknown indication
  10. CARNITOR SF [Concomitant]
     Active Substance: LEVOCARNITINE
     Indication: Product used for unknown indication
  11. VITAMINS [Concomitant]
     Active Substance: VITAMINS
     Indication: Product used for unknown indication
  12. VALPROIC ACID [Concomitant]
     Active Substance: VALPROIC ACID

REACTIONS (3)
  - Seizure [Unknown]
  - Hospitalisation [Unknown]
  - COVID-19 [Unknown]

NARRATIVE: CASE EVENT DATE: 20190405
